FAERS Safety Report 4686835-9 (Version None)
Quarter: 2005Q2

REPORT INFORMATION
  Report Type: 
  Country: None (occurrence: None)
  Receive Date: 20050608
  Receipt Date: 20050530
  Transmission Date: 20051028
  Serious: Yes (Hospitalization)
  Sender: FDA-Public Use
  Company Number: D-A2581078-3775

PATIENT
  Age: 66 Year
  Sex: Male
  Weight: 78 kg

DRUGS (5)
  1. DONEPEZIL HCL [Suspect]
     Indication: DEMENTIA ALZHEIMER'S TYPE
     Dosage: 10 MG, 1 IN 1 D, ORAL
     Route: 048
     Dates: start: 20040515, end: 20050218
  2. ATORVASTATIN CALCIUM [Suspect]
     Indication: DEMENTIA
     Dosage: DOUBLEBLIND, 2 IN 1 D, ORAL
     Route: 048
     Dates: start: 20050205, end: 20050217
  3. AMLODIPINE [Concomitant]
  4. CANDESARTAN (CANDESARTAN) [Concomitant]
  5. REBOXETINE (REBOXETNE) [Concomitant]

REACTIONS (12)
  - ABDOMINAL PAIN UPPER [None]
  - BUNDLE BRANCH BLOCK LEFT [None]
  - CHOLELITHIASIS [None]
  - DRUG INTERACTION [None]
  - GASTROINTESTINAL DISORDER [None]
  - HEADACHE [None]
  - MEMORY IMPAIRMENT [None]
  - MUSCLE SPASMS [None]
  - NAUSEA [None]
  - TRANSAMINASES INCREASED [None]
  - VERTIGO [None]
  - VOMITING [None]
